FAERS Safety Report 5467180-0 (Version None)
Quarter: 2007Q3

REPORT INFORMATION
  Report Type: 
  Country: None (occurrence: None)
  Receive Date: 20070925
  Receipt Date: 20070913
  Transmission Date: 20080115
  Serious: Yes (Other)
  Sender: FDA-Public Use
  Company Number: US-ROCHE-517238

PATIENT
  Age: 61 Year
  Sex: Male

DRUGS (10)
  1. MYCOPHENOLATE MOFETIL [Suspect]
     Indication: RENAL TRANSPLANT
     Route: 048
     Dates: start: 20050629
  2. BLINDED BELATACEPT [Suspect]
     Indication: RENAL TRANSPLANT
     Dosage: FREQUENCY NOT REPORTED.
     Route: 042
     Dates: start: 20050629
  3. LIPITOR [Concomitant]
  4. NORVASC [Concomitant]
  5. PREDNISONE [Concomitant]
  6. FLOMAX [Concomitant]
  7. CALCIUM NOS [Concomitant]
  8. CITRIC ACID [Concomitant]
  9. CALCITRIOL [Concomitant]
  10. AMITRIPTYLIN. HYDROCHLORID. [Concomitant]

REACTIONS (1)
  - PROSTATE CANCER [None]
